FAERS Safety Report 5145343-1 (Version None)
Quarter: 2006Q4

REPORT INFORMATION
  Report Type: 
  Country: None (occurrence: None)
  Receive Date: 20061101
  Receipt Date: 20061024
  Transmission Date: 20070319
  Serious: Yes (Life-Threatening, Hospitalization)
  Sender: FDA-Public Use
  Company Number: HQWYE328810AUG06

PATIENT
  Age: 64 Year
  Sex: Female

DRUGS (9)
  1. MYLOTARG [Suspect]
     Indication: ACUTE MYELOID LEUKAEMIA RECURRENT
     Dosage: 9 MG/M^2 1X PER 1 DAY INTRAVENOUS DRIP; SEE IMAGE
     Route: 041
     Dates: start: 20060201, end: 20060201
  2. MYLOTARG [Suspect]
     Indication: ACUTE MYELOID LEUKAEMIA RECURRENT
     Dosage: 9 MG/M^2 1X PER 1 DAY INTRAVENOUS DRIP; SEE IMAGE
     Route: 041
     Dates: start: 20060221, end: 20060221
  3. MAXIPIME [Concomitant]
  4. FUNGUARD (MICAFUNGIN SODIUM) [Concomitant]
  5. SULFAMETHOXAZOLE + TRIMETHOPRIM [Concomitant]
  6. MUCOSTA (REBAMIPIDE) [Concomitant]
  7. NORVASC [Concomitant]
  8. AMOBAN (ZOPICLONE) [Concomitant]
  9. VFEND [Concomitant]

REACTIONS (8)
  - FEBRILE NEUTROPENIA [None]
  - HEPATIC FUNCTION ABNORMAL [None]
  - INFUSION RELATED REACTION [None]
  - LARYNGEAL OEDEMA [None]
  - NEUTROPENIA [None]
  - SINUSITIS ASPERGILLUS [None]
  - THROMBOCYTOPENIA [None]
  - WHITE BLOOD CELL COUNT DECREASED [None]
